FAERS Safety Report 8272713-5 (Version None)
Quarter: 2012Q2

REPORT INFORMATION
  Report Type: 
  Country: None (occurrence: None)
  Receive Date: 20120411
  Receipt Date: 20120330
  Transmission Date: 20120825
  Serious: Yes (Hospitalization)
  Sender: FDA-Public Use
  Company Number: US-BAXTER-2012BH007554

PATIENT
  Sex: Male

DRUGS (9)
  1. FENTANYL CITRATE [Concomitant]
     Indication: PAIN
     Route: 061
     Dates: start: 20110916
  2. LORAZEPAM [Concomitant]
     Indication: PAIN
     Route: 048
     Dates: start: 20100614
  3. DEXAMETHASONE [Suspect]
     Indication: MULTIPLE MYELOMA
     Route: 048
  4. AMBIEN [Concomitant]
     Indication: INSOMNIA
     Route: 048
     Dates: start: 20100520
  5. VELCADE [Suspect]
     Indication: MULTIPLE MYELOMA
     Route: 042
     Dates: start: 20110908, end: 20111013
  6. CYTOXAN [Suspect]
     Indication: MULTIPLE MYELOMA
     Route: 042
     Dates: start: 20110908, end: 20110908
  7. DILAUDID [Concomitant]
     Indication: PAIN
     Route: 048
     Dates: start: 20100628
  8. MORPHINE SULFATE [Concomitant]
     Indication: PAIN
     Route: 048
     Dates: start: 20111018
  9. COMPAZINE [Concomitant]
     Indication: NAUSEA
     Route: 048
     Dates: start: 20110928

REACTIONS (1)
  - BACK PAIN [None]
